FAERS Safety Report 19079408 (Version 1)
Quarter: 2021Q1

REPORT INFORMATION
  Report Type: Other
  Country: FR (occurrence: FR)
  Receive Date: 20210331
  Receipt Date: 20210331
  Transmission Date: 20210420
  Serious: Yes (Life-Threatening)
  Sender: FDA-Public Use
  Company Number: FR-VALIDUS PHARMACEUTICALS LLC-FR-2021VAL000709

PATIENT
  Age: 68 Year
  Sex: Female

DRUGS (8)
  1. ALTIZIDE SPIRONOLACTONE RPG [Suspect]
     Active Substance: ALTHIAZIDE\SPIRONOLACTONE
     Indication: HYPERTENSION
     Dosage: 1 DF, QD; ORAL
     Route: 048
     Dates: end: 20180521
  2. KARDEGIC [Concomitant]
     Active Substance: ASPIRIN DL-LYSINE
  3. GLYCERYL TRINITRATE [Suspect]
     Active Substance: NITROGLYCERIN
     Indication: PRODUCT USED FOR UNKNOWN INDICATION
     Dosage: UNK
     Dates: end: 20180521
  4. MEMANTINE HYDROCHLORIDE. [Concomitant]
     Active Substance: MEMANTINE HYDROCHLORIDE
  5. FLECAINIDE ACETATE. [Suspect]
     Active Substance: FLECAINIDE ACETATE
     Indication: PRODUCT USED FOR UNKNOWN INDICATION
     Dosage: 100 MG, UNK
     Route: 048
     Dates: end: 20180321
  6. FUROSEMIDE. [Suspect]
     Active Substance: FUROSEMIDE
     Indication: HYPERTENSION
     Dosage: 80 MG QD ORAL
     Route: 048
     Dates: end: 20180521
  7. PAROXETINE. [Concomitant]
     Active Substance: PAROXETINE
  8. ATORVASTATINE                      /01326101/ [Concomitant]
     Active Substance: ATORVASTATIN

REACTIONS (3)
  - Hypokalaemia [Recovered/Resolved]
  - Electrocardiogram QT prolonged [Unknown]
  - Acute kidney injury [Recovered/Resolved]

NARRATIVE: CASE EVENT DATE: 20180521
